FAERS Safety Report 15983251 (Version 1)
Quarter: 2019Q1

REPORT INFORMATION
  Report Type: Spontaneous
  Country: US (occurrence: US)
  Receive Date: 20190220
  Receipt Date: 20190220
  Transmission Date: 20190418
  Serious: Yes (Other)
  Sender: FDA-Public Use
  Company Number: PHEH2019US006363

PATIENT
  Age: 62 Year
  Sex: Male

DRUGS (2)
  1. AFINITOR [Suspect]
     Active Substance: EVEROLIMUS
     Indication: MALIGNANT NEOPLASM OF RENAL PELVIS
     Dosage: 5 MG, QD
     Route: 048
  2. LENVIMA [Suspect]
     Active Substance: LENVATINIB
     Indication: RENAL CANCER
     Dosage: 18 MG, QD
     Route: 048

REACTIONS (13)
  - Bone pain [Unknown]
  - Decreased appetite [Unknown]
  - Weight decreased [Unknown]
  - Back pain [Unknown]
  - Metastases to bone [Unknown]
  - Pneumonia [Unknown]
  - Asthenia [Unknown]
  - Red blood cell count decreased [Unknown]
  - Red cell distribution width increased [Unknown]
  - Fatigue [Unknown]
  - Diarrhoea [Unknown]
  - Constipation [Unknown]
  - Candida infection [Unknown]

NARRATIVE: CASE EVENT DATE: 20181217
